FAERS Safety Report 6376755-6 (Version None)
Quarter: 2009Q3

REPORT INFORMATION
  Report Type: 
  Country: None (occurrence: None)
  Receive Date: 20090925
  Receipt Date: 20090901
  Transmission Date: 20100115
  Serious: No
  Sender: FDA-Public Use
  Company Number: BR-ROCHE-650634

PATIENT
  Sex: Male
  Weight: 10 kg

DRUGS (4)
  1. TAMIFLU [Suspect]
     Dosage: FREQUENCY REPORTED AS 2 ML
     Route: 048
     Dates: start: 20090810, end: 20090811
  2. TAMIFLU [Suspect]
     Route: 048
     Dates: start: 20090811, end: 20090814
  3. ALIVIUM [Concomitant]
     Dosage: FREQUENCY: 10 DROPS 3 TIMES A DAY
     Route: 048
  4. DIPYRONE [Concomitant]
     Dosage: FREQUENCY: 2.5 ML/ 3 TIMES A DAY
     Route: 048

REACTIONS (3)
  - DRUG ADMINISTRATION ERROR [None]
  - PYREXIA [None]
  - VOMITING [None]
